FAERS Safety Report 8912110 (Version 1)
Quarter: 2012Q4

REPORT INFORMATION
  Report Type: 
  Country: US (occurrence: US)
  Receive Date: 20121116
  Receipt Date: 20121116
  Transmission Date: 20130627
  Serious: No
  Sender: FDA-Public Use
  Company Number: US-PFIZER INC-2012284533

PATIENT
  Age: 62 Year
  Sex: Female
  Weight: 69.39 kg

DRUGS (2)
  1. TOVIAZ [Suspect]
     Indication: OVERACTIVE BLADDER
     Dosage: 4 mg, daily
     Dates: start: 201210
  2. ATENOLOL [Concomitant]
     Indication: BLOOD PRESSURE HIGH
     Dosage: 50 mg, daily

REACTIONS (1)
  - Constipation [Not Recovered/Not Resolved]
